FAERS Safety Report 20975417 (Version 1)
Quarter: 2022Q2

REPORT INFORMATION
  Report Type: Spontaneous
  Country: US (occurrence: None)
  Receive Date: 20220617
  Receipt Date: 20220617
  Transmission Date: 20220721
  Serious: Yes (Hospitalization)
  Sender: FDA-Public Use
  Company Number: None

PATIENT
  Age: 32 Year
  Sex: Male
  Weight: 70.76 kg

DRUGS (1)
  1. CANNABIDIOL\HERBALS [Suspect]
     Active Substance: CANNABIDIOL\HERBALS
     Dosage: FREQUENCY : ONCE;?
     Route: 048
     Dates: start: 20220314, end: 20220323

REACTIONS (8)
  - Intentional product use issue [None]
  - Vision blurred [None]
  - Head discomfort [None]
  - Depressed level of consciousness [None]
  - Cardiac disorder [None]
  - Hypokinesia [None]
  - Prehypertension [None]
  - Euphoric mood [None]

NARRATIVE: CASE EVENT DATE: 20220323
